FAERS Safety Report 5511035-X (Version None)
Quarter: 2007Q4

REPORT INFORMATION
  Report Type: 
  Country: None (occurrence: None)
  Receive Date: 20071109
  Receipt Date: 20071031
  Transmission Date: 20080405
  Serious: Yes (Other)
  Sender: FDA-Public Use
  Company Number: IT-JNJFOC-20071100042

PATIENT
  Age: 9 Month
  Sex: Male

DRUGS (1)
  1. ANTALFEBAL BAMBINI  2 % [Suspect]
     Indication: DRUG USE FOR UNKNOWN INDICATION
     Route: 048

REACTIONS (2)
  - ACCIDENTAL OVERDOSE [None]
  - SYNCOPE [None]
